FAERS Safety Report 7832339-1 (Version None)
Quarter: 2011Q4

REPORT INFORMATION
  Report Type: 
  Country: None (occurrence: None)
  Receive Date: 20111022
  Receipt Date: 20111011
  Transmission Date: 20120403
  Serious: Yes (Other)
  Sender: FDA-Public Use
  Company Number: US-BAYER-2011-008989

PATIENT
  Age: 29 Year
  Sex: Female
  Weight: 68.027 kg

DRUGS (8)
  1. DROSPIRENONE AND ETHINYL ESTRADIOL [Suspect]
     Dosage: UNK
     Route: 048
     Dates: start: 20090601, end: 20090701
  2. ZEGERID [Concomitant]
     Indication: HELICOBACTER INFECTION
  3. YASMIN [Suspect]
     Indication: ACNE
  4. METRONIDAZOLE [Concomitant]
     Indication: ANTIBIOTIC THERAPY
     Dosage: UNK
     Dates: start: 20061001, end: 20061001
  5. CLARITHROMYCIN [Concomitant]
     Indication: ANTIBIOTIC THERAPY
     Dosage: UNK
     Dates: start: 20061001, end: 20061001
  6. CIPROFLOXACIN [Concomitant]
     Indication: ANTIBIOTIC THERAPY
     Dosage: UNK
     Dates: start: 20061001, end: 20061001
  7. YASMIN [Suspect]
     Indication: CONTRACEPTION
     Dosage: UNK
     Dates: start: 20050601, end: 20080101
  8. PROMETHAZINE [Concomitant]
     Indication: ANTIALLERGIC THERAPY
     Dosage: UNK
     Dates: start: 20061001, end: 20061001

REACTIONS (2)
  - PAIN [None]
  - CHOLECYSTITIS CHRONIC [None]
